FAERS Safety Report 9869828 (Version 1)
Quarter: 2014Q1

REPORT INFORMATION
  Report Type: Spontaneous
  Country: IN (occurrence: None)
  Receive Date: 20140203
  Receipt Date: 20140203
  Transmission Date: 20141002
  Serious: Yes (Hospitalization)
  Sender: FDA-Public Use
  Company Number: 2014P1000621

PATIENT
  Age: 16 Year
  Sex: Male

DRUGS (2)
  1. PHENYTOIN [Suspect]
     Indication: CONVULSION
     Route: 048
  2. CLOBAZAM [Concomitant]

REACTIONS (3)
  - Cerebellar atrophy [None]
  - Viral infection [None]
  - Gait disturbance [None]
